FAERS Safety Report 4647917-0 (Version None)
Quarter: 2005Q2

REPORT INFORMATION
  Report Type: 
  Country: None (occurrence: None)
  Receive Date: 20050426
  Receipt Date: 20050314
  Transmission Date: 20051028
  Serious: No
  Sender: FDA-Public Use
  Company Number: DL2005106

PATIENT
  Age: 23 Year
  Sex: Female

DRUGS (2)
  1. MIFEPRISTONE TABLETS, 200 MG (DANCO LABS) [Suspect]
     Indication: ABORTION INDUCED
     Dosage: 200 MG, ORAL
     Route: 048
     Dates: start: 20050305
  2. MISOPROSTOL [Suspect]
     Dosage: 200 MG, ORAL
     Route: 048
     Dates: start: 20050306

REACTIONS (2)
  - ANAEMIA [None]
  - METRORRHAGIA [None]
